FAERS Safety Report 25178059 (Version 1)
Quarter: 2025Q2

REPORT INFORMATION
  Report Type: Report from Study
  Country: CA (occurrence: CA)
  Receive Date: 20250409
  Receipt Date: 20250409
  Transmission Date: 20250716
  Serious: Yes (Other)
  Sender: TAKEDA
  Company Number: CA-TAKEDA-2021TUS024278

PATIENT
  Age: 43 Year
  Sex: Male

DRUGS (14)
  1. VEDOLIZUMAB [Suspect]
     Active Substance: VEDOLIZUMAB
     Indication: Colitis ulcerative
  2. VEDOLIZUMAB [Suspect]
     Active Substance: VEDOLIZUMAB
  3. VEDOLIZUMAB [Suspect]
     Active Substance: VEDOLIZUMAB
  4. VEDOLIZUMAB [Suspect]
     Active Substance: VEDOLIZUMAB
  5. VEDOLIZUMAB [Suspect]
     Active Substance: VEDOLIZUMAB
  6. VEDOLIZUMAB [Suspect]
     Active Substance: VEDOLIZUMAB
  7. VEDOLIZUMAB [Suspect]
     Active Substance: VEDOLIZUMAB
  8. VEDOLIZUMAB [Suspect]
     Active Substance: VEDOLIZUMAB
  9. ROBAXACET [Suspect]
     Active Substance: ACETAMINOPHEN\METHOCARBAMOL
     Indication: Product used for unknown indication
  10. PREDNISONE [Concomitant]
     Active Substance: PREDNISONE
     Dosage: 30 MILLIGRAM, QD
  11. PREGABALIN [Concomitant]
     Active Substance: PREGABALIN
     Dates: start: 20220101, end: 20220115
  12. BUPROPION [Concomitant]
     Active Substance: BUPROPION
  13. AZITHROMYCIN [Concomitant]
     Active Substance: AZITHROMYCIN
  14. WEGOVY [Concomitant]
     Active Substance: SEMAGLUTIDE

REACTIONS (12)
  - Haematochezia [Not Recovered/Not Resolved]
  - Stomach mass [Recovered/Resolved]
  - Respiratory rate increased [Unknown]
  - Anxiety [Unknown]
  - Ligament sprain [Recovered/Resolved]
  - Frequent bowel movements [Not Recovered/Not Resolved]
  - Stress [Not Recovered/Not Resolved]
  - Chest pain [Unknown]
  - Hyperhidrosis [Recovered/Resolved]
  - Blood pressure increased [Unknown]
  - Constipation [Unknown]
  - Back pain [Not Recovered/Not Resolved]

NARRATIVE: CASE EVENT DATE: 20210806
